FAERS Safety Report 24318469 (Version 2)
Quarter: 2024Q3

REPORT INFORMATION
  Report Type: Spontaneous
  Country: CA (occurrence: CA)
  Receive Date: 20240913
  Receipt Date: 20240930
  Transmission Date: 20241016
  Serious: No
  Sender: JOHNSON AND JOHNSON
  Company Number: CA-VIIV HEALTHCARE LIMITED-CA2023034499

PATIENT
  Age: 56 Year
  Sex: Male

DRUGS (6)
  1. RILPIVIRINE [Suspect]
     Active Substance: RILPIVIRINE
     Indication: HIV infection
     Dosage: UNK UNK, Q2M CABOTEGRAVIR 600MG/3ML RILPIVIRINE 900MG/3ML
     Route: 030
     Dates: start: 20220308
  2. RILPIVIRINE [Suspect]
     Active Substance: RILPIVIRINE
     Dosage: UNK UNK, Q2M CABOTEGRAVIR 600MG/3ML RILPIVIRINE 900MG/3ML
     Route: 030
     Dates: start: 20220404
  3. RILPIVIRINE [Suspect]
     Active Substance: RILPIVIRINE
     Dosage: UNK UNK, Q2M CABOTEGRAVIR 600MG/3ML RILPIVIRINE 900MG/3ML
     Route: 030
  4. CABOTEGRAVIR [Suspect]
     Active Substance: CABOTEGRAVIR
     Indication: HIV infection
     Dosage: UNK UNK, Q2M CABOTEGRAVIR 600MG/3ML RILPIVIRINE 900MG/3ML
     Route: 030
     Dates: start: 20220308
  5. CABOTEGRAVIR [Suspect]
     Active Substance: CABOTEGRAVIR
     Dosage: UNK UNK, Q2M CABOTEGRAVIR 600MG/3ML RILPIVIRINE 900MG/3ML
     Route: 030
     Dates: start: 20220404
  6. CABOTEGRAVIR [Suspect]
     Active Substance: CABOTEGRAVIR
     Dosage: UNK UNK, Q2M CABOTEGRAVIR 600MG/3ML RILPIVIRINE 900MG/3ML
     Route: 030

REACTIONS (1)
  - Injection site pain [Recovered/Resolved]
